FAERS Safety Report 4791546-5 (Version None)
Quarter: 2005Q4

REPORT INFORMATION
  Report Type: 
  Country: None (occurrence: None)
  Receive Date: 20051007
  Receipt Date: 20050204
  Transmission Date: 20060501
  Serious: No
  Sender: FDA-Public Use
  Company Number: US-BRISTOL-MYERS SQUIBB COMPANY-12861753

PATIENT
  Age: 85 Year
  Sex: Female

DRUGS (3)
  1. APROVEL TABS [Suspect]
     Indication: HYPERTENSION
     Route: 048
     Dates: start: 20050115, end: 20050201
  2. CALCIUM GLUCONATE [Concomitant]
     Route: 048
  3. FOSAMAX [Concomitant]
     Route: 048

REACTIONS (2)
  - HOT FLUSH [None]
  - NAUSEA [None]
